FAERS Safety Report 10642750 (Version 1)
Quarter: 2014Q4

REPORT INFORMATION
  Report Type: Spontaneous
  Country: US (occurrence: None)
  Receive Date: 20141209
  Receipt Date: 20141209
  Transmission Date: 20150529
  Serious: Yes (Other)
  Sender: FDA-Public Use
  Company Number: None

PATIENT
  Age: 57 Year
  Sex: Male
  Weight: 74.3 kg

DRUGS (2)
  1. METHOTREXATE [Suspect]
     Active Substance: METHOTREXATE
     Indication: ACUTE MYELOID LEUKAEMIA
     Route: 037
     Dates: start: 20140818
  2. METHOTREXATE [Suspect]
     Active Substance: METHOTREXATE
     Indication: NERVOUS SYSTEM DISORDER
     Route: 037
     Dates: start: 20140818

REACTIONS (9)
  - VIIth nerve paralysis [None]
  - Muscular weakness [None]
  - Apnoea [None]
  - Neurological symptom [None]
  - Hemiparesis [None]
  - Respiratory disorder [None]
  - Speech disorder [None]
  - Muscle twitching [None]
  - Unresponsive to stimuli [None]

NARRATIVE: CASE EVENT DATE: 20140905
